FAERS Safety Report 6252019-6 (Version None)
Quarter: 2009Q2

REPORT INFORMATION
  Report Type: 
  Country: None (occurrence: None)
  Receive Date: 20090630
  Receipt Date: 20060424
  Transmission Date: 20091009
  Serious: Yes (Hospitalization)
  Sender: FDA-Public Use
  Company Number: US-ROCHE-638476

PATIENT
  Sex: Male

DRUGS (21)
  1. ENFUVIRTIDE [Suspect]
     Route: 065
     Dates: start: 20040913, end: 20070101
  2. EPZICOM [Concomitant]
     Dosage: FREQUENCY: QD.
     Dates: start: 20040913, end: 20080814
  3. VIDEX EC [Concomitant]
     Dosage: FREQUENCY: QD.
     Dates: start: 20040913, end: 20051129
  4. VIREAD [Concomitant]
     Dosage: FREQUENCY: QD.
     Dates: start: 20040913, end: 20080814
  5. APTIVUS [Concomitant]
     Dates: start: 20050708, end: 20061215
  6. NORVIR [Concomitant]
     Dates: start: 20050708, end: 20061215
  7. NORVIR [Concomitant]
     Dates: start: 20061215, end: 20080814
  8. ISENTRESS [Concomitant]
     Dosage: DOSE: 450MG; 400MG.
     Dates: start: 20061215, end: 20080814
  9. PREZISTA [Concomitant]
     Dates: start: 20061215, end: 20080814
  10. LEVAQUIN [Concomitant]
     Dosage: FREQUENCY: QD.
     Dates: start: 20061024, end: 20061031
  11. LEVAQUIN [Concomitant]
     Dosage: FREQUENCY: QD.
     Dates: start: 20080506, end: 20080513
  12. AMOXICILLIN [Concomitant]
     Dates: start: 20060101, end: 20060101
  13. ERYTHROMYCIN [Concomitant]
     Dates: start: 20060101, end: 20060101
  14. ZMAX [Concomitant]
     Dates: start: 20070801, end: 20070801
  15. ZMAX [Concomitant]
     Dates: start: 20071012, end: 20071017
  16. ZITHROMAX [Concomitant]
     Dates: start: 20070925, end: 20070930
  17. CEFEPIME [Concomitant]
     Dates: start: 20080110, end: 20080116
  18. VANCOMYCIN [Concomitant]
     Dates: start: 20080110, end: 20080116
  19. CIPRO [Concomitant]
     Dates: start: 20080101, end: 20080101
  20. CIPRO [Concomitant]
     Dates: start: 20080101, end: 20080101
  21. DAPSONE [Concomitant]
     Dosage: FREQUENCY: QD.
     Dates: end: 20080814

REACTIONS (12)
  - ANAEMIA [None]
  - CARDIAC FAILURE CONGESTIVE [None]
  - CHRONIC OBSTRUCTIVE PULMONARY DISEASE [None]
  - COLORECTAL CANCER [None]
  - DEHYDRATION [None]
  - ENDOSCOPY GASTROINTESTINAL [None]
  - GASTROINTESTINAL HAEMORRHAGE [None]
  - HELICOBACTER PYLORI IDENTIFICATION TEST POSITIVE [None]
  - HIV INFECTION [None]
  - KAPOSI'S SARCOMA [None]
  - MALLORY-WEISS SYNDROME [None]
  - SYNCOPE [None]
